FAERS Safety Report 7238727-9 (Version None)
Quarter: 2011Q1

REPORT INFORMATION
  Report Type: 
  Country: None (occurrence: None)
  Receive Date: 20110121
  Receipt Date: 20110106
  Transmission Date: 20110831
  Serious: Yes (Other)
  Sender: FDA-Public Use
  Company Number: FI-PURDUE-GBR-2011-0007582

PATIENT
  Sex: Male

DRUGS (1)
  1. NON-PMN BUPRENORPHINE [Suspect]
     Indication: DRUG ABUSE
     Route: 013

REACTIONS (4)
  - DRUG ABUSE [None]
  - FINGER AMPUTATION [None]
  - PERIPHERAL ISCHAEMIA [None]
  - INCORRECT ROUTE OF DRUG ADMINISTRATION [None]
